FAERS Safety Report 15061937 (Version 2)
Quarter: 2018Q3

REPORT INFORMATION
  Report Type: Spontaneous
  Country: DE (occurrence: DE)
  Receive Date: 20180625
  Receipt Date: 20180710
  Transmission Date: 20181010
  Serious: Yes (Hospitalization)
  Sender: FDA-Public Use
  Company Number: DE-NOVOPROD-606800

PATIENT
  Age: 49 Year
  Sex: Female
  Weight: 118 kg

DRUGS (4)
  1. NOVORAPID [Suspect]
     Active Substance: INSULIN ASPART
     Indication: TYPE 1 DIABETES MELLITUS
     Dosage: UNK
     Route: 058
     Dates: end: 20180613
  2. NOVORAPID [Suspect]
     Active Substance: INSULIN ASPART
     Dosage: 11 IU CORRECTION
     Route: 058
     Dates: start: 20180613
  3. NOVORAPID [Suspect]
     Active Substance: INSULIN ASPART
     Dosage: UNK
     Route: 058
     Dates: start: 20180614
  4. NOVORAPID [Suspect]
     Active Substance: INSULIN ASPART
     Dosage: 7:15 CORRECTION
     Route: 058
     Dates: start: 20180614

REACTIONS (3)
  - Diabetic ketoacidosis [Recovered/Resolved]
  - Gastrointestinal disorder [Unknown]
  - Wrong technique in product usage process [Unknown]

NARRATIVE: CASE EVENT DATE: 20180611
